FAERS Safety Report 8193134-X (Version None)
Quarter: 2012Q1

REPORT INFORMATION
  Report Type: 
  Country: None (occurrence: None)
  Receive Date: 20120221
  Receipt Date: 20111108
  Transmission Date: 20120608
  Serious: No
  Sender: FDA-Public Use
  Company Number: 038165

PATIENT
  Age: 35 Year
  Sex: Male

DRUGS (2)
  1. OXCARBAZEPINE [Suspect]
  2. LACOSAMIDE [Suspect]
     Dosage: (STRENGTH: 150)

REACTIONS (2)
  - SEDATION [None]
  - DRUG INTOLERANCE [None]
